FAERS Safety Report 9152412 (Version 1)
Quarter: 2013Q1

REPORT INFORMATION
  Report Type: Spontaneous
  Country: GB (occurrence: GB)
  Receive Date: 20130308
  Receipt Date: 20130308
  Transmission Date: 20140127
  Serious: Yes (Death)
  Sender: FDA-Public Use
  Company Number: GB-BAXTER-2013BAX006295

PATIENT
  Age: 68 Year
  Sex: Female

DRUGS (2)
  1. DIANEAL PD4 GLUCOSE 1.36% W/V / 13.6 MG/ML [Suspect]
     Indication: RENAL FAILURE CHRONIC
     Dates: start: 20120822, end: 20130122
  2. DIANEAL PD4 GLUCOSE 2.27% W/V / 22.7 MG/ML [Suspect]
     Indication: RENAL FAILURE CHRONIC
     Dates: start: 20120822, end: 20130122

REACTIONS (2)
  - Bronchopneumonia [Fatal]
  - Myocardial ischaemia [Fatal]
